FAERS Safety Report 20478178 (Version 1)
Quarter: 2022Q1

REPORT INFORMATION
  Report Type: Report from Study
  Country: RU (occurrence: None)
  Receive Date: 20220216
  Receipt Date: 20220216
  Transmission Date: 20220423
  Serious: Yes (Hospitalization, Disabling)
  Sender: FDA-Public Use
  Company Number: RU-ROCHE-3023104

PATIENT
  Age: 68 Year
  Sex: Male

DRUGS (23)
  1. ACALABRUTINIB [Suspect]
     Active Substance: ACALABRUTINIB
     Indication: Mantle cell lymphoma
     Route: 048
     Dates: start: 20190702, end: 20190929
  2. ACALABRUTINIB [Suspect]
     Active Substance: ACALABRUTINIB
     Route: 048
     Dates: start: 20190930, end: 20190930
  3. ACALABRUTINIB [Suspect]
     Active Substance: ACALABRUTINIB
     Route: 048
     Dates: start: 20191004, end: 20191021
  4. ACALABRUTINIB [Suspect]
     Active Substance: ACALABRUTINIB
     Route: 048
     Dates: start: 20191022, end: 20191118
  5. ACALABRUTINIB [Suspect]
     Active Substance: ACALABRUTINIB
     Route: 048
     Dates: start: 20191119, end: 20191212
  6. RITUXIMAB [Suspect]
     Active Substance: RITUXIMAB
     Indication: Mantle cell lymphoma
     Route: 041
     Dates: start: 20190702, end: 20190702
  7. RITUXIMAB [Suspect]
     Active Substance: RITUXIMAB
     Route: 041
     Dates: start: 20190805, end: 20190805
  8. RITUXIMAB [Suspect]
     Active Substance: RITUXIMAB
     Route: 041
     Dates: start: 20190902, end: 20190902
  9. RITUXIMAB [Suspect]
     Active Substance: RITUXIMAB
     Route: 041
     Dates: start: 20191004, end: 20191004
  10. RITUXIMAB [Suspect]
     Active Substance: RITUXIMAB
     Route: 041
     Dates: start: 20191028, end: 20191028
  11. RITUXIMAB [Suspect]
     Active Substance: RITUXIMAB
     Route: 041
     Dates: start: 20191125, end: 20191125
  12. BENDAMUSTINE [Suspect]
     Active Substance: BENDAMUSTINE
     Indication: Mantle cell lymphoma
     Route: 042
     Dates: start: 20190702, end: 20190702
  13. BENDAMUSTINE [Suspect]
     Active Substance: BENDAMUSTINE
     Route: 042
     Dates: start: 20190703, end: 20190703
  14. BENDAMUSTINE [Suspect]
     Active Substance: BENDAMUSTINE
     Route: 042
     Dates: start: 20190805, end: 20190805
  15. BENDAMUSTINE [Suspect]
     Active Substance: BENDAMUSTINE
     Route: 042
     Dates: start: 20190806, end: 20190806
  16. BENDAMUSTINE [Suspect]
     Active Substance: BENDAMUSTINE
     Route: 042
     Dates: start: 20190903, end: 20190903
  17. MALTOFER [Concomitant]
     Indication: Iron deficiency anaemia
     Route: 048
     Dates: start: 20190310
  18. ENALAPRIL [Concomitant]
     Active Substance: ENALAPRIL
     Indication: Hypertension
     Route: 048
     Dates: start: 201904
  19. IRON POLYMALTOSE [Concomitant]
     Active Substance: IRON POLYMALTOSE
     Indication: Iron deficiency anaemia
     Dates: start: 20190310
  20. ACYCLOVIR [Concomitant]
     Active Substance: ACYCLOVIR
     Indication: Viral infection
     Dates: start: 20190702
  21. ALLOPURINOL [Concomitant]
     Active Substance: ALLOPURINOL
     Indication: Tumour lysis syndrome
     Dates: start: 20190702
  22. SULFAMETHOXAZOLE [Concomitant]
     Active Substance: SULFAMETHOXAZOLE
     Indication: Pneumocystis jirovecii pneumonia
     Dates: start: 20190702
  23. TRIMETHOPRIM [Concomitant]
     Active Substance: TRIMETHOPRIM
     Indication: Pneumocystis jirovecii pneumonia
     Dates: start: 20190702

REACTIONS (2)
  - Paraparesis [Recovered/Resolved]
  - Disease progression [Recovered/Resolved]

NARRATIVE: CASE EVENT DATE: 20191213
